FAERS Safety Report 6308896-3 (Version None)
Quarter: 2009Q3

REPORT INFORMATION
  Report Type: 
  Country: None (occurrence: None)
  Receive Date: 20090813
  Receipt Date: 20081001
  Transmission Date: 20100115
  Serious: No
  Sender: FDA-Public Use
  Company Number: US-ALLERGAN-0809842US

PATIENT
  Age: 84 Year
  Sex: Female
  Weight: 56.689 kg

DRUGS (2)
  1. COMBIGAN [Suspect]
     Indication: GLAUCOMA
     Dosage: 1 GTT, BID
     Route: 047
     Dates: start: 20080602, end: 20080811
  2. ACTONEL [Concomitant]
     Indication: OSTEOPOROSIS
     Dosage: 35 MG, Q WEEK
     Route: 048

REACTIONS (4)
  - CHEST DISCOMFORT [None]
  - DIZZINESS [None]
  - DRY EYE [None]
  - DRY MOUTH [None]
